FAERS Safety Report 11749890 (Version 1)
Quarter: 2015Q4

REPORT INFORMATION
  Report Type: Spontaneous
  Country: US (occurrence: US)
  Receive Date: 20151118
  Receipt Date: 20151118
  Transmission Date: 20160304
  Serious: No
  Sender: FDA-Public Use
  Company Number: US-BAYER-2015-468321

PATIENT
  Age: 70 Year
  Sex: Female
  Weight: 116.1 kg

DRUGS (15)
  1. GABAPENTIN. [Concomitant]
     Active Substance: GABAPENTIN
     Dosage: UNK
  2. OMEPRAZOLE. [Concomitant]
     Active Substance: OMEPRAZOLE
     Dosage: UNK
  3. VITAMIN D [Concomitant]
     Active Substance: CHOLECALCIFEROL
     Dosage: UNK
  4. AVAPRO [Concomitant]
     Active Substance: IRBESARTAN
     Dosage: UNK
  5. BAYER LOW DOSE [Concomitant]
     Active Substance: ASPIRIN
     Indication: ISCHAEMIC HEART DISEASE PROPHYLAXIS
     Dosage: 1 DF, QD
     Route: 048
  6. NOVOLOG [Concomitant]
     Active Substance: INSULIN ASPART
     Dosage: UNK
  7. ALPHAGAN P [Concomitant]
     Active Substance: BRIMONIDINE TARTRATE
     Dosage: UNK
  8. ALLOPURINOL. [Concomitant]
     Active Substance: ALLOPURINOL
     Dosage: UNK
  9. LEVEMIR [Concomitant]
     Active Substance: INSULIN DETEMIR
     Dosage: UNK
  10. TEMAZEPAM. [Concomitant]
     Active Substance: TEMAZEPAM
     Dosage: UNK
  11. NIFEDICAL XL [Concomitant]
     Active Substance: NIFEDIPINE
     Dosage: UNK
  12. TRAVATAN [Concomitant]
     Active Substance: TRAVOPROST
     Dosage: UNK
  13. CALTRATE [CALCIUM CARBONATE] [Concomitant]
     Dosage: UNK
  14. MIRALAX [Suspect]
     Active Substance: POLYETHYLENE GLYCOL 3350
     Indication: COLONOSCOPY
     Dosage: 1 DF,EVERY 20 TO 30 MINUTES.
     Route: 048
  15. SIMVASTATIN. [Concomitant]
     Active Substance: SIMVASTATIN
     Dosage: FOUR TIMES DAILY

REACTIONS (1)
  - Off label use [None]
